FAERS Safety Report 12247696 (Version 1)
Quarter: 2016Q2

REPORT INFORMATION
  Report Type: Spontaneous
  Country: US (occurrence: US)
  Receive Date: 20160408
  Receipt Date: 20160408
  Transmission Date: 20160815
  Serious: No
  Sender: FDA-Public Use
  Company Number: US-HOSPIRA-2896110

PATIENT

DRUGS (1)
  1. PROPOFOL. [Suspect]
     Active Substance: PROPOFOL
     Indication: ANAESTHESIA
     Route: 041
     Dates: start: 20150530

REACTIONS (3)
  - Poor quality drug administered [Recovered/Resolved]
  - No adverse event [None]
  - Product contamination physical [Recovered/Resolved]

NARRATIVE: CASE EVENT DATE: 20150530
